FAERS Safety Report 4757736-2 (Version None)
Quarter: 2005Q3

REPORT INFORMATION
  Report Type: 
  Country: None (occurrence: None)
  Receive Date: 20050831
  Receipt Date: 20050829
  Transmission Date: 20060218
  Serious: Yes (Other)
  Sender: FDA-Public Use
  Company Number: PHEH2005US09605

PATIENT
  Age: 65 Year
  Sex: Male
  Weight: 73 kg

DRUGS (4)
  1. ZOMETA [Suspect]
     Indication: MULTIPLE MYELOMA
     Dosage: 4 MG EVERY MONTH
     Dates: start: 20031111, end: 20050613
  2. MELPHALAN [Concomitant]
     Dates: start: 20040223, end: 20050520
  3. PREDNISONE TAB [Concomitant]
     Dates: start: 20040223, end: 20050520
  4. THALIDOMIDE [Concomitant]
     Dates: start: 20031101, end: 20040101

REACTIONS (6)
  - ALVEOLOPLASTY [None]
  - ASEPTIC NECROSIS BONE [None]
  - EXOSTOSIS [None]
  - ORAL PAIN [None]
  - OSTEONECROSIS [None]
  - TOOTH EXTRACTION [None]
